FAERS Safety Report 18012634 (Version 1)
Quarter: 2020Q3

REPORT INFORMATION
  Report Type: Spontaneous
  Country: US (occurrence: US)
  Receive Date: 20200713
  Receipt Date: 20200713
  Transmission Date: 20201103
  Serious: No
  Sender: FDA-Public Use
  Company Number: US-TEVA-2020-US-1799686

PATIENT
  Age: 65 Year
  Sex: Female
  Weight: 102.06 kg

DRUGS (7)
  1. MASTISOL [Concomitant]
     Route: 065
  2. FISH OIL [Concomitant]
     Active Substance: FISH OIL
     Route: 065
  3. CALCIUM [Concomitant]
     Active Substance: CALCIUM
     Route: 065
  4. TRAZODONE HYDROCHLORIDE. [Suspect]
     Active Substance: TRAZODONE HYDROCHLORIDE
     Indication: INSOMNIA
     Dosage: 3 TABLETS AT NIGHT FOR SLEEP IN 2015
     Route: 065
     Dates: start: 2015
  5. MULTIVITAMIN [Concomitant]
     Active Substance: VITAMINS
     Route: 065
  6. TRAZODONE HYDROCHLORIDE. [Suspect]
     Active Substance: TRAZODONE HYDROCHLORIDE
     Indication: DEPRESSION
  7. PROTONIX [Concomitant]
     Active Substance: PANTOPRAZOLE SODIUM
     Indication: GASTROOESOPHAGEAL REFLUX DISEASE
     Dosage: 20 MG IN THE MORNING
     Route: 065

REACTIONS (4)
  - Nerve injury [Unknown]
  - Drug ineffective [Unknown]
  - Muscle twitching [Unknown]
  - Tremor [Not Recovered/Not Resolved]
